FAERS Safety Report 15890923 (Version 4)
Quarter: 2020Q2

REPORT INFORMATION
  Report Type: Spontaneous
  Country: US (occurrence: US)
  Receive Date: 20190130
  Receipt Date: 20200604
  Transmission Date: 20200713
  Serious: No
  Sender: FDA-Public Use
  Company Number: US-PFIZER INC-2019042442

PATIENT
  Age: 61 Year
  Sex: Female

DRUGS (3)
  1. SOMAVERT [Suspect]
     Active Substance: PEGVISOMANT
     Indication: GIGANTISM
     Dosage: 20 MG, DAILY
     Route: 058
     Dates: start: 20190118, end: 201911
  2. SOMAVERT [Suspect]
     Active Substance: PEGVISOMANT
     Dosage: 25 MG, DAILY
     Route: 058
     Dates: start: 201912
  3. SOMAVERT [Suspect]
     Active Substance: PEGVISOMANT
     Indication: ACROMEGALY
     Dosage: 15 MG, DAILY
     Route: 058
     Dates: start: 20170716, end: 20190117

REACTIONS (2)
  - Insulin-like growth factor increased [Recovered/Resolved]
  - Tinnitus [Unknown]
